FAERS Safety Report 7606597-2 (Version None)
Quarter: 2011Q3

REPORT INFORMATION
  Report Type: 
  Country: None (occurrence: None)
  Receive Date: 20110705
  Receipt Date: 20110622
  Transmission Date: 20111222
  Serious: Yes (Other)
  Sender: FDA-Public Use
  Company Number: 2011-00709

PATIENT
  Sex: Female

DRUGS (1)
  1. ZICAM COUGH MAX SPRAY [Suspect]
     Dosage: 3 TIMES

REACTIONS (1)
  - ABDOMINAL PAIN [None]
